FAERS Safety Report 18247122 (Version 1)
Quarter: 2020Q3

REPORT INFORMATION
  Report Type: Spontaneous
  Country: US (occurrence: US)
  Receive Date: 20200909
  Receipt Date: 20200909
  Transmission Date: 20201103
  Serious: No
  Sender: FDA-Public Use
  Company Number: US-009507513-2009USA002516

PATIENT
  Age: 68 Year
  Sex: Female

DRUGS (2)
  1. BELSOMRA [Suspect]
     Active Substance: SUVOREXANT
     Indication: INSOMNIA
     Dosage: 5 MILLIGRAM
     Route: 048
     Dates: start: 20200901, end: 20200902
  2. FOSAMAX [Concomitant]
     Active Substance: ALENDRONATE SODIUM

REACTIONS (8)
  - Wheezing [Unknown]
  - Swelling face [Unknown]
  - Nightmare [Unknown]
  - Oesophagitis [Unknown]
  - Wrong technique in product usage process [Unknown]
  - Erythema [Unknown]
  - Diarrhoea [Unknown]
  - Panic disorder [Unknown]

NARRATIVE: CASE EVENT DATE: 20200901
